FAERS Safety Report 8240041-X (Version None)
Quarter: 2012Q1

REPORT INFORMATION
  Report Type: 
  Country: None (occurrence: None)
  Receive Date: 20120309
  Receipt Date: 20110418
  Transmission Date: 20120608
  Serious: Yes (Other)
  Sender: FDA-Public Use
  Company Number: PHHY2011US17621

PATIENT
  Age: 60 Year
  Sex: Female

DRUGS (1)
  1. EXTAVIA [Suspect]
     Indication: MULTIPLE SCLEROSIS
     Dosage: 0.25 MG, QOD, SUBCUTANEOUS
     Route: 058
     Dates: start: 20101202

REACTIONS (6)
  - MULTIPLE SCLEROSIS RELAPSE [None]
  - ASTHENIA [None]
  - PAIN [None]
  - INSOMNIA [None]
  - INJECTION SITE ERYTHEMA [None]
  - FATIGUE [None]
